FAERS Safety Report 17117356 (Version 1)
Quarter: 2019Q4

REPORT INFORMATION
  Report Type: Spontaneous
  Country: DE (occurrence: DE)
  Receive Date: 20191205
  Receipt Date: 20191205
  Transmission Date: 20200122
  Serious: Yes (Hospitalization, Other)
  Sender: FDA-Public Use
  Company Number: DE-BAUSCH-BL-2019-063267

PATIENT
  Sex: Female
  Weight: 90 kg

DRUGS (36)
  1. EPIRUBICIN [Suspect]
     Active Substance: EPIRUBICIN
     Dosage: ONCE/SINGLE, TOTAL
     Route: 065
     Dates: start: 20190321
  2. PACLITAXEL. [Suspect]
     Active Substance: PACLITAXEL
     Dosage: ONCE/SINGLE, TOTAL
     Route: 065
     Dates: start: 20190516
  3. EPIRUBICIN [Suspect]
     Active Substance: EPIRUBICIN
     Indication: BREAST CANCER
     Dosage: ONCE/SINGLE, TOTAL
     Route: 065
     Dates: start: 20190228
  4. PACLITAXEL. [Suspect]
     Active Substance: PACLITAXEL
     Dosage: ONCE/SINGLE, TOTAL
     Route: 065
     Dates: start: 20190522
  5. PACLITAXEL. [Suspect]
     Active Substance: PACLITAXEL
     Dosage: ONCE/SINGLE, TOTAL
     Route: 065
     Dates: start: 20190614
  6. PACLITAXEL. [Suspect]
     Active Substance: PACLITAXEL
     Dosage: ONCE/SINGLE, TOTAL
     Route: 065
     Dates: start: 20190621
  7. SELENE [Concomitant]
     Indication: PRODUCT USED FOR UNKNOWN INDICATION
     Dosage: (MORNING)
     Route: 065
  8. JODID [Concomitant]
     Active Substance: IODINE
     Indication: PRODUCT USED FOR UNKNOWN INDICATION
     Dosage: (MORNING)
     Route: 065
  9. CALCIUM [Concomitant]
     Active Substance: CALCIUM
     Indication: PRODUCT USED FOR UNKNOWN INDICATION
     Dosage: (MORNING)
     Route: 065
  10. ASPIRIN. [Concomitant]
     Active Substance: ASPIRIN
     Indication: PRODUCT USED FOR UNKNOWN INDICATION
     Route: 065
     Dates: start: 201412, end: 201905
  11. PACLITAXEL. [Suspect]
     Active Substance: PACLITAXEL
     Dosage: ONCE/SINGLE, TOTAL
     Route: 065
     Dates: start: 20190607
  12. MAGNESIUM [Concomitant]
     Active Substance: MAGNESIUM
     Indication: PRODUCT USED FOR UNKNOWN INDICATION
     Dosage: 5 MMOL/5G, QD (MAGNESIUM ION, BAG)
     Route: 065
  13. TELMISARTAN. [Concomitant]
     Active Substance: TELMISARTAN
     Dosage: (IN EVENING)
     Route: 065
     Dates: start: 201804
  14. LEVOTHYROXINE. [Concomitant]
     Active Substance: LEVOTHYROXINE
     Indication: PRODUCT USED FOR UNKNOWN INDICATION
     Dosage: (MORNING)
     Route: 065
  15. VALSARTAN. [Suspect]
     Active Substance: VALSARTAN
     Indication: HYPERTENSION
     Dosage: (IN EVENING)
     Route: 065
     Dates: start: 201412, end: 201804
  16. PACLITAXEL. [Suspect]
     Active Substance: PACLITAXEL
     Dosage: ONCE/SINGLE, TOTAL
     Route: 065
     Dates: start: 20190711, end: 20190711
  17. METAMIZOLE [Concomitant]
     Active Substance: METAMIZOLE
     Indication: PAIN
     Dosage: 30 DROPS OF SOLUTION WITH 500 MG/ML, UP TO 4 TIMES PRN
     Route: 065
  18. CRATAEGUTT [Concomitant]
     Indication: PRODUCT USED FOR UNKNOWN INDICATION
     Route: 065
     Dates: start: 201607, end: 201905
  19. CYCLOPHOSPHAMIDE. [Suspect]
     Active Substance: CYCLOPHOSPHAMIDE
     Dosage: ONCE/SINGLE TOTAL
     Route: 065
     Dates: start: 20190321
  20. PACLITAXEL. [Suspect]
     Active Substance: PACLITAXEL
     Dosage: ONCE/SINGLE, TOTAL
     Route: 065
     Dates: start: 20190529
  21. TELMISARTAN. [Concomitant]
     Active Substance: TELMISARTAN
     Indication: HYPERTENSION
     Dosage: AS NEEDED
     Route: 065
  22. EPIRUBICIN [Suspect]
     Active Substance: EPIRUBICIN
     Dosage: ONCE/SINGLE, TOTAL
     Route: 065
     Dates: start: 20190207
  23. CYCLOPHOSPHAMIDE. [Suspect]
     Active Substance: CYCLOPHOSPHAMIDE
     Dosage: ONCE/SINGLE, TOTAL
     Route: 065
     Dates: start: 20190411
  24. MONTELUKAST [Concomitant]
     Active Substance: MONTELUKAST SODIUM
     Indication: PRODUCT USED FOR UNKNOWN INDICATION
     Dosage: (EVENING)
     Route: 065
  25. BISOPROLOL [Concomitant]
     Active Substance: BISOPROLOL
     Indication: PRODUCT USED FOR UNKNOWN INDICATION
     Dosage: DOSE CHANGED
     Route: 065
  26. CLOPIDOGREL [Concomitant]
     Active Substance: CLOPIDOGREL BISULFATE
     Indication: PRODUCT USED FOR UNKNOWN INDICATION
     Route: 065
     Dates: start: 201707, end: 201808
  27. ATORVASTATIN [Concomitant]
     Active Substance: ATORVASTATIN
     Indication: PRODUCT USED FOR UNKNOWN INDICATION
     Dosage: (IN EVENING)
     Route: 065
  28. CYCLOPHOSPHAMIDE. [Suspect]
     Active Substance: CYCLOPHOSPHAMIDE
     Indication: BREAST CANCER
     Dosage: ONCE/SINGLE TOTAL
     Route: 065
     Dates: start: 20190228
  29. PACLITAXEL. [Suspect]
     Active Substance: PACLITAXEL
     Indication: BREAST CANCER
     Dosage: ONCE/SINGLE, TOTAL
     Route: 065
     Dates: start: 20190704
  30. PANTOPRAZOLE [Concomitant]
     Active Substance: PANTOPRAZOLE
     Indication: PRODUCT USED FOR UNKNOWN INDICATION
     Route: 065
     Dates: start: 201412, end: 201905
  31. CHOLECALCIFEROL [Concomitant]
     Active Substance: CHOLECALCIFEROL
     Indication: PRODUCT USED FOR UNKNOWN INDICATION
     Dosage: MORNING
     Route: 065
  32. DICLOFENAC [Suspect]
     Active Substance: DICLOFENAC
     Indication: PRODUCT USED FOR UNKNOWN INDICATION
     Route: 065
  33. EPIRUBICIN [Suspect]
     Active Substance: EPIRUBICIN
     Dosage: ONCE/SINGLE TOTAL
     Route: 065
     Dates: start: 20190411
  34. CYCLOPHOSPHAMIDE. [Suspect]
     Active Substance: CYCLOPHOSPHAMIDE
     Dosage: ONCE/SINGLE, TOTAL
     Route: 065
     Dates: start: 20190207
  35. BISOPROLOL [Concomitant]
     Active Substance: BISOPROLOL
     Dosage: (AT NOON)
     Route: 065
     Dates: start: 201707, end: 201905
  36. PANTOZLE [Concomitant]
     Active Substance: PANTOPRAZOLE SODIUM
     Indication: PRODUCT USED FOR UNKNOWN INDICATION
     Dosage: (MORNING)
     Route: 065

REACTIONS (25)
  - Immunodeficiency [Unknown]
  - Carotid arteriosclerosis [Unknown]
  - Dyspnoea [Unknown]
  - Pneumonia [Unknown]
  - Asthenia [Unknown]
  - Hypotension [Unknown]
  - Acute myocardial infarction [Unknown]
  - Invasive ductal breast carcinoma [Not Recovered/Not Resolved]
  - Respiratory failure [Unknown]
  - Cardiac failure [Unknown]
  - Polyneuropathy [Unknown]
  - Blood pressure increased [Unknown]
  - Hepatic steatosis [Unknown]
  - Eczema [Unknown]
  - Drug intolerance [Unknown]
  - Pulmonary embolism [Unknown]
  - Ejection fraction decreased [Unknown]
  - Fatigue [Unknown]
  - Cough [Unknown]
  - Pleural effusion [Unknown]
  - Pulmonary oedema [Unknown]
  - Haematoma [Unknown]
  - Chest discomfort [Unknown]
  - Pericardial effusion [Unknown]
  - Leukopenia [Unknown]

NARRATIVE: CASE EVENT DATE: 2017
